FAERS Safety Report 16477043 (Version 2)
Quarter: 2019Q3

REPORT INFORMATION
  Report Type: Report from Study
  Country: FR (occurrence: FR)
  Receive Date: 20190626
  Receipt Date: 20190701
  Transmission Date: 20191004
  Serious: Yes (Hospitalization)
  Sender: FDA-Public Use
  Company Number: FR-ROCHE-2341194

PATIENT
  Age: 47 Year
  Sex: Female

DRUGS (7)
  1. ATEZOLIZUMAB. [Suspect]
     Active Substance: ATEZOLIZUMAB
     Indication: CERVIX CARCINOMA
     Dosage: ON 28/MAY/2019, SHE RECEIVED THE LAST CYCLE OF TREATMENT (C1) OF ATEZOLIZUMAB CUMULATIVE DOSE OF 120
     Route: 041
     Dates: start: 20190528
  2. SINGULAIR [Concomitant]
     Active Substance: MONTELUKAST SODIUM
  3. INNOVAIR [Concomitant]
     Active Substance: BECLOMETHASONE DIPROPIONATE\FORMOTEROL
  4. SPIRIVA [Concomitant]
     Active Substance: TIOTROPIUM BROMIDE MONOHYDRATE
  5. MAXALTLYO [Concomitant]
     Active Substance: RIZATRIPTAN BENZOATE
  6. VENTOLINE [SALBUTAMOL] [Concomitant]
     Active Substance: ALBUTEROL SULFATE
  7. CISPLATIN. [Suspect]
     Active Substance: CISPLATIN
     Indication: CERVIX CARCINOMA
     Dosage: ON 04/JUN/2019, SHE RECEIVED LAST CYCLE OF TREATMENT (C1) CISPLATIN IV: 63 MG ON 04/JUN/2019 FOR A C
     Route: 040
     Dates: start: 20190604

REACTIONS (6)
  - Nausea [Not Recovered/Not Resolved]
  - Swelling face [Not Recovered/Not Resolved]
  - Sepsis [Not Recovered/Not Resolved]
  - Vomiting [Not Recovered/Not Resolved]
  - Eye swelling [Not Recovered/Not Resolved]
  - Abdominal pain [Not Recovered/Not Resolved]

NARRATIVE: CASE EVENT DATE: 20190605
